FAERS Safety Report 12759310 (Version 1)
Quarter: 2016Q3

REPORT INFORMATION
  Report Type: Spontaneous
  Country: US (occurrence: US)
  Receive Date: 20160919
  Receipt Date: 20160919
  Transmission Date: 20161109
  Serious: No
  Sender: FDA-Public Use
  Company Number: US-009507513-1609USA006921

PATIENT
  Sex: Female

DRUGS (1)
  1. BELSOMRA [Suspect]
     Active Substance: SUVOREXANT
     Indication: INSOMNIA
     Dosage: UNK UNK, HS
     Route: 048
     Dates: start: 201609, end: 201609

REACTIONS (1)
  - Sleep paralysis [Recovered/Resolved]

NARRATIVE: CASE EVENT DATE: 201609
